FAERS Safety Report 23021946 (Version 1)
Quarter: 2023Q4

REPORT INFORMATION
  Report Type: Spontaneous
  Country: IT (occurrence: IT)
  Receive Date: 20231003
  Receipt Date: 20231003
  Transmission Date: 20240109
  Serious: Yes (Hospitalization)
  Sender: FDA-Public Use
  Company Number: IT-SUN PHARMACEUTICAL INDUSTRIES LTD-2023RR-410451

PATIENT
  Age: 9 Year
  Sex: Male
  Weight: 19 kg

DRUGS (11)
  1. MEROPENEM [Suspect]
     Active Substance: MEROPENEM
     Indication: Product used for unknown indication
     Dosage: 1.8 GRAM, DAILY, MERREM 600 MG X 3 TIMES/DAY (EXPECTED UNTIL 07/06)
     Route: 051
  2. OMEPRAZOLE [Suspect]
     Active Substance: OMEPRAZOLE
     Indication: Product used for unknown indication
     Dosage: 20 MILLIGRAM, DAILY
     Route: 051
  3. DAPTOMYCIN [Suspect]
     Active Substance: DAPTOMYCIN
     Indication: Product used for unknown indication
     Dosage: 140 MILLIGRAM, DAILY
     Route: 051
  4. CLOBAZAM [Suspect]
     Active Substance: CLOBAZAM
     Indication: Product used for unknown indication
     Dosage: CLOBAZAM 2.5 MG+ 5 MG /DAY
     Route: 048
  5. AMIODARONE [Suspect]
     Active Substance: AMIODARONE
     Indication: Product used for unknown indication
     Dosage: 100 MILLIGRAM, DAILY
     Route: 048
  6. FUROSEMIDE [Suspect]
     Active Substance: FUROSEMIDE
     Indication: Product used for unknown indication
     Dosage: LASIX 5 MG AS NEEDED (ADMINISTERED 10 MG ON 01/06, 5 MG ON 02-03-04-05-06/06)
     Route: 051
  7. ASPIRIN DL-LYSINE [Suspect]
     Active Substance: ASPIRIN DL-LYSINE
     Indication: Product used for unknown indication
     Dosage: 75 MILLIGRAM, DAILY
     Route: 048
  8. CALCIFEDIOL [Suspect]
     Active Substance: CALCIFEDIOL
     Indication: Product used for unknown indication
     Dosage: 3 GTT DROPS, DAILY
     Route: 048
  9. VALPROIC ACID [Suspect]
     Active Substance: VALPROIC ACID
     Indication: Product used for unknown indication
     Dosage: 500 MILLIGRAM, DAILY
     Route: 048
  10. TOPIRAMATE [Suspect]
     Active Substance: TOPIRAMATE
     Indication: Product used for unknown indication
     Dosage: 25 MILLIGRAM, DAILY, TOPIRAMATE 12.5 MG TWICE A DAY
     Route: 048
  11. ETHOSUXIMIDE [Suspect]
     Active Substance: ETHOSUXIMIDE
     Indication: Product used for unknown indication
     Dosage: ETHOSUXIMIDE 250 MG+ 300 MG (FURTHER STOPOVER PLANNED)
     Route: 048

REACTIONS (1)
  - Oliguria [Not Recovered/Not Resolved]

NARRATIVE: CASE EVENT DATE: 20230528
